FAERS Safety Report 8589534-6 (Version None)
Quarter: 2012Q3

REPORT INFORMATION
  Report Type: 
  Country: None (occurrence: None)
  Receive Date: 20120813
  Receipt Date: 20120807
  Transmission Date: 20120928
  Serious: Yes (Hospitalization)
  Sender: FDA-Public Use
  Company Number: US-VERTEX PHARMACEUTICALS INC.-AE-2012-011619

PATIENT
  Sex: Male
  Weight: 59.8 kg

DRUGS (12)
  1. WELLBUTRIN XL [Concomitant]
     Indication: DEPRESSION
     Dates: start: 20120423, end: 20120727
  2. BENADRYL [Concomitant]
     Indication: RASH
     Dates: start: 20120714
  3. ATRIPLA [Concomitant]
     Indication: HIV INFECTION
     Dates: start: 20090617
  4. ADVAIR DISKUS 100/50 [Concomitant]
     Indication: WHEEZING
     Dates: start: 20120524
  5. PEGASYS [Suspect]
     Indication: HEPATITIS C
     Route: 058
     Dates: start: 20120713
  6. WELLBUTRIN XL [Concomitant]
     Dates: start: 20120727
  7. IBUPROFEN [Concomitant]
     Indication: HEADACHE
     Dates: start: 20120713
  8. CLARITIN [Concomitant]
     Indication: RASH
     Dates: start: 20120724
  9. RIBAVIRIN [Suspect]
     Indication: HEPATITIS C
     Route: 048
     Dates: start: 20120713
  10. ALBUTEROL [Concomitant]
     Indication: WHEEZING
     Dates: start: 20120524
  11. TEMAZEPAM [Concomitant]
     Indication: INSOMNIA
     Dates: start: 20100510
  12. VX-950 [Suspect]
     Indication: HEPATITIS C
     Route: 048
     Dates: start: 20120713

REACTIONS (1)
  - SYNCOPE [None]
